FAERS Safety Report 13163505 (Version 1)
Quarter: 2017Q1

REPORT INFORMATION
  Report Type: Spontaneous
  Country: US (occurrence: US)
  Receive Date: 20170130
  Receipt Date: 20170130
  Transmission Date: 20170428
  Serious: No
  Sender: FDA-Public Use
  Company Number: US-MISSION PHARMACAL COMPANY-1062507

PATIENT
  Age: 66 Year
  Sex: Female

DRUGS (1)
  1. LITHOSTAT [Suspect]
     Active Substance: ACETOHYDROXAMIC ACID
     Indication: NEPHROSTOMY
     Route: 048
     Dates: end: 20170104

REACTIONS (4)
  - Muscle twitching [Recovered/Resolved]
  - Muscular weakness [Unknown]
  - Paraesthesia [Recovered/Resolved]
  - Tremor [Recovering/Resolving]
